FAERS Safety Report 8385698-8 (Version None)
Quarter: 2012Q2

REPORT INFORMATION
  Report Type: 
  Country: None (occurrence: None)
  Receive Date: 20120523
  Receipt Date: 20120516
  Transmission Date: 20120825
  Serious: Yes (Other)
  Sender: FDA-Public Use
  Company Number: USA/UKI/12/0024409

PATIENT
  Age: 63 Year
  Sex: Male

DRUGS (1)
  1. CETIRIZINE [Suspect]
     Indication: URTICARIA PIGMENTOSA

REACTIONS (3)
  - TUBULOINTERSTITIAL NEPHRITIS [None]
  - RENAL FAILURE ACUTE [None]
  - NEPHRITIS ALLERGIC [None]
